FAERS Safety Report 20177515 (Version 2)
Quarter: 2022Q1

REPORT INFORMATION
  Report Type: Spontaneous
  Country: US (occurrence: US)
  Receive Date: 20211213
  Receipt Date: 20220112
  Transmission Date: 20220423
  Serious: Yes (Hospitalization)
  Sender: FDA-Public Use
  Company Number: US-Stemline Therapeutics, Inc.-2021ST000070

PATIENT
  Age: 80 Year
  Sex: Male

DRUGS (1)
  1. ELZONRIS [Suspect]
     Active Substance: TAGRAXOFUSP-ERZS
     Indication: Blastic plasmacytoid dendritic cell neoplasia
     Dosage: CYCLE 1
     Route: 042
     Dates: start: 20211201, end: 20211205

REACTIONS (2)
  - Hypotension [Not Recovered/Not Resolved]
  - Pyrexia [Not Recovered/Not Resolved]

NARRATIVE: CASE EVENT DATE: 20211207
